FAERS Safety Report 4920533-9 (Version None)
Quarter: 2006Q1

REPORT INFORMATION
  Report Type: 
  Country: None (occurrence: None)
  Receive Date: 20060223
  Receipt Date: 20051124
  Transmission Date: 20060701
  Serious: Yes (Hospitalization)
  Sender: FDA-Public Use
  Company Number: FR-BRISTOL-MYERS SQUIBB COMPANY-13197447

PATIENT
  Age: 45 Year
  Sex: Male
  Weight: 120 kg

DRUGS (6)
  1. ABILIFY [Suspect]
     Indication: SCHIZOPHRENIA
     Dosage: DOSAGE: INCREASED TO 15 MG DAILY (DATE UNKNOWN)
     Route: 048
     Dates: start: 20050830, end: 20051116
  2. DEPAKOTE [Suspect]
     Indication: SCHIZOPHRENIA
     Route: 048
     Dates: start: 20010101, end: 20051121
  3. ZYPREXA [Concomitant]
     Indication: SCHIZOPHRENIA
     Route: 048
     Dates: start: 20051116
  4. TERCIAN [Concomitant]
     Indication: ANXIETY
     Route: 048
     Dates: start: 20051116, end: 20051129
  5. IMOVANE [Concomitant]
     Indication: INSOMNIA
     Route: 048
     Dates: start: 20051103
  6. SERESTA [Concomitant]
     Indication: ANXIETY
     Route: 048
     Dates: start: 20051121

REACTIONS (5)
  - ALANINE AMINOTRANSFERASE INCREASED [None]
  - DELUSION [None]
  - HEPATIC ENZYME INCREASED [None]
  - HEPATOMEGALY [None]
  - NEUTROPENIA [None]
